FAERS Safety Report 6983930-6 (Version None)
Quarter: 2010Q3

REPORT INFORMATION
  Report Type: 
  Country: None (occurrence: None)
  Receive Date: 20100914
  Receipt Date: 20090420
  Transmission Date: 20110219
  Serious: No
  Sender: FDA-Public Use
  Company Number: US-WYE-H09052109

PATIENT

DRUGS (2)
  1. ADVIL LIQUI-GELS [Suspect]
     Dosage: 2 CAPSULES X 1
     Route: 048
  2. IBUPROFEN/DIPHENHYDRAMINE [Concomitant]
     Dosage: 1 CAPSULE X 1
     Route: 048

REACTIONS (2)
  - GASTROINTESTINAL PAIN [None]
  - INCORRECT DOSE ADMINISTERED [None]
